FAERS Safety Report 7945764-5 (Version None)
Quarter: 2011Q4

REPORT INFORMATION
  Report Type: 
  Country: None (occurrence: None)
  Receive Date: 20111129
  Receipt Date: 20110407
  Transmission Date: 20120403
  Serious: No
  Sender: FDA-Public Use
  Company Number: US-GLAXOSMITHKLINE-A0921839A

PATIENT
  Age: 83 Year
  Sex: Female

DRUGS (3)
  1. LOTENSIN [Concomitant]
  2. NASAL SPRAY [Concomitant]
  3. LANOXIN [Suspect]
     Indication: PRODUCT USED FOR UNKNOWN INDICATION
     Dosage: .125MG PER DAY
     Route: 048

REACTIONS (2)
  - PRODUCT QUALITY ISSUE [None]
  - HEART RATE INCREASED [None]
